FAERS Safety Report 4507784-2 (Version None)
Quarter: 2004Q4

REPORT INFORMATION
  Report Type: 
  Country: None (occurrence: None)
  Receive Date: 20041123
  Receipt Date: 20041116
  Transmission Date: 20050328
  Serious: Yes (Other)
  Sender: FDA-Public Use
  Company Number: AU-ABBOTT-04P-008-0280806-00

PATIENT
  Sex: Male

DRUGS (6)
  1. EPILIM [Suspect]
     Indication: DRUG USE FOR UNKNOWN INDICATION
     Route: 048
  2. ACETYLSALICYLIC ACID [Concomitant]
     Indication: DRUG USE FOR UNKNOWN INDICATION
  3. DILTIAZEM [Concomitant]
     Indication: DRUG USE FOR UNKNOWN INDICATION
  4. CARBAMAZEPINE [Concomitant]
     Indication: DRUG USE FOR UNKNOWN INDICATION
  5. ATORVASTATIN [Concomitant]
     Indication: DRUG USE FOR UNKNOWN INDICATION
  6. THIAMINE [Concomitant]
     Indication: DRUG USE FOR UNKNOWN INDICATION

REACTIONS (1)
  - ANGINA PECTORIS [None]
